FAERS Safety Report 10684944 (Version 2)
Quarter: 2015Q1

REPORT INFORMATION
  Report Type: Spontaneous
  Country: US (occurrence: US)
  Receive Date: 20141231
  Receipt Date: 20150121
  Transmission Date: 20150720
  Serious: Yes (Other)
  Sender: FDA-Public Use
  Company Number: PHHY2014US166389

PATIENT
  Age: 35 Year
  Sex: Female

DRUGS (11)
  1. TRAZODONE HYDROCHLORIDE. [Suspect]
     Active Substance: TRAZODONE HYDROCHLORIDE
     Dosage: 75 MG, UNK
     Route: 065
  2. FLUOXETINE [Suspect]
     Active Substance: FLUOXETINE\FLUOXETINE HYDROCHLORIDE
     Indication: DEPRESSION
     Dosage: 60 MG, UNK (40 MG IN THE MORNING AND 20 MG AT NOON)
     Route: 065
  3. ALPRAZOLAM. [Suspect]
     Active Substance: ALPRAZOLAM
     Indication: DEPRESSION
     Dosage: 1 MG, QD (DAILY FOR 5 YEARS)
     Route: 065
  4. BUMETANIDE. [Suspect]
     Active Substance: BUMETANIDE
     Indication: DEPRESSION
     Dosage: 1 MG, QD
     Route: 065
  5. CIMETIDINE [Suspect]
     Active Substance: CIMETIDINE
     Indication: DEPRESSION
     Dosage: 300 MG, QD
     Route: 065
  6. MAZINDOL [Suspect]
     Active Substance: MAZINDOL
     Indication: DECREASED APPETITE
     Dosage: 2 MG, QD (1 TO 2 MG DAILY FOR 15 YEARS)
     Route: 065
  7. FLUOXETINE [Suspect]
     Active Substance: FLUOXETINE\FLUOXETINE HYDROCHLORIDE
     Dosage: 100 MG, QD (80 TO 100 MG OF FLUOXETINE DAILY)
     Route: 065
  8. ASPIRIN, BUTALBITAL, CAFFEINE [Suspect]
     Active Substance: ASPIRIN\BUTALBITAL\CAFFEINE
     Indication: DEPRESSION
     Route: 065
  9. LEVOTHYROXINE SODIUM. [Suspect]
     Active Substance: LEVOTHYROXINE SODIUM
     Indication: DEPRESSION
     Dosage: 0.15 MG, QD
     Route: 065
  10. TRAZODONE HYDROCHLORIDE. [Suspect]
     Active Substance: TRAZODONE HYDROCHLORIDE
     Indication: DEPRESSION
     Dosage: 150 MG, QD (AT BEDTIME FOR 2 YEARS)
     Route: 065
  11. IBUPROFEN. [Suspect]
     Active Substance: IBUPROFEN
     Indication: DEPRESSION
     Route: 065

REACTIONS (4)
  - Weight decreased [Unknown]
  - Drug abuse [Unknown]
  - Incorrect dose administered [Unknown]
  - Depression [Unknown]
